FAERS Safety Report 9363080 (Version 1)
Quarter: 2013Q2

REPORT INFORMATION
  Report Type: Spontaneous
  Country: US (occurrence: US)
  Receive Date: 20130624
  Receipt Date: 20130624
  Transmission Date: 20140414
  Serious: No
  Sender: FDA-Public Use
  Company Number: US-PFIZER INC-2013187679

PATIENT
  Age: 80 Year
  Sex: Male
  Weight: 90 kg

DRUGS (2)
  1. LIPITOR [Suspect]
     Dosage: UNK,DAILY
  2. LISINOPRIL [Concomitant]
     Indication: BLOOD PRESSURE ABNORMAL
     Dosage: UNK, DAILY

REACTIONS (1)
  - Fatigue [Not Recovered/Not Resolved]
